FAERS Safety Report 8004944-3 (Version None)
Quarter: 2011Q4

REPORT INFORMATION
  Report Type: 
  Country: None (occurrence: None)
  Receive Date: 20111219
  Receipt Date: 20111208
  Transmission Date: 20120403
  Serious: Yes (Hospitalization)
  Sender: FDA-Public Use
  Company Number: DSA_48381_2011

PATIENT
  Sex: Male

DRUGS (6)
  1. IMOVANE (IMOVANE-ZOPICLONE) [Suspect]
     Indication: PRODUCT USED FOR UNKNOWN INDICATION
     Dosage: DF ORAL
     Route: 048
  2. BUPROPION HYDROCHLORIDE [Suspect]
     Indication: PRODUCT USED FOR UNKNOWN INDICATION
     Dosage: 300 MG, DAILY DOSE, ORAL
     Route: 048
  3. METHYLENEDIOXYMETHAMPHETAMINE [Concomitant]
  4. PROPAVAN (PROPAVAN-PROPIOMAZINE MALEATE) [Suspect]
     Indication: PRODUCT USED FOR UNKNOWN INDICATION
     Dosage: DF ORAL
     Route: 048
  5. PROMETHAZINE HCL [Suspect]
     Indication: PRODUCT USED FOR UNKNOWN INDICATION
     Dosage: DF ORAL
     Route: 048
  6. PREGABALIN [Concomitant]

REACTIONS (6)
  - DRUG ABUSE [None]
  - ROAD TRAFFIC ACCIDENT [None]
  - LOSS OF CONSCIOUSNESS [None]
  - ANXIETY [None]
  - HALLUCINATIONS, MIXED [None]
  - UNRESPONSIVE TO STIMULI [None]
